FAERS Safety Report 7386490-3 (Version None)
Quarter: 2011Q1

REPORT INFORMATION
  Report Type: 
  Country: None (occurrence: None)
  Receive Date: 20110331
  Receipt Date: 20110322
  Transmission Date: 20110831
  Serious: Yes (Death, Other)
  Sender: FDA-Public Use
  Company Number: CA-GENZYME-CLOF-1001512

PATIENT
  Sex: Male

DRUGS (1)
  1. CLOFARABINE [Suspect]
     Indication: PRODUCT USED FOR UNKNOWN INDICATION
     Route: 065

REACTIONS (5)
  - NEUTROPENIA [None]
  - BACTERIAL INFECTION [None]
  - ASPERGILLOSIS [None]
  - DEATH [None]
  - MUCOSAL INFLAMMATION [None]
